FAERS Safety Report 9314855 (Version 2)
Quarter: 2013Q3

REPORT INFORMATION
  Report Type: Report from Study
  Country: JP (occurrence: JP)
  Receive Date: 20130529
  Receipt Date: 20130817
  Transmission Date: 20140515
  Serious: Yes (Hospitalization, Other)
  Sender: FDA-Public Use
  Company Number: JP-ROCHE-1212113

PATIENT
  Age: 55 Year
  Sex: Female

DRUGS (11)
  1. METHOXY POLYETHYLENE GLYCOL-EPOETIN BETA [Suspect]
     Indication: NEPHROGENIC ANAEMIA
     Route: 058
     Dates: start: 20121205
  2. PLAVIX [Concomitant]
     Route: 048
  3. BLOPRESS [Concomitant]
     Route: 048
     Dates: end: 20121227
  4. AMLODIPINE [Concomitant]
     Route: 048
     Dates: end: 20121227
  5. BEZATOL SR [Concomitant]
     Route: 048
  6. FAMOTIDINE D [Concomitant]
     Indication: PROPHYLAXIS
     Route: 048
     Dates: end: 20130124
  7. FAMOTIDINE D [Concomitant]
     Dosage: DRUG NAME:BLOSTAR M
     Route: 048
  8. ALDACTONE A [Concomitant]
     Route: 048
  9. LASIX [Concomitant]
     Route: 048
  10. FEBURIC [Concomitant]
     Route: 048
     Dates: start: 20121205
  11. FAMOTIDINE [Concomitant]
     Indication: PROPHYLAXIS
     Route: 048
     Dates: start: 20130125

REACTIONS (6)
  - Decreased appetite [Recovering/Resolving]
  - Malaise [Recovering/Resolving]
  - Blood creatinine increased [Recovering/Resolving]
  - Acidosis [Recovered/Resolved]
  - Aspartate aminotransferase increased [Recovering/Resolving]
  - Alanine aminotransferase increased [Recovering/Resolving]
